FAERS Safety Report 21939461 (Version 1)
Quarter: 2023Q1

REPORT INFORMATION
  Report Type: Report from Study
  Country: US (occurrence: US)
  Receive Date: 20230201
  Receipt Date: 20230201
  Transmission Date: 20230417
  Serious: No
  Sender: FDA-Public Use
  Company Number: US-EXELIXIS-CABO-21047515

PATIENT
  Age: 45 Year
  Sex: Male

DRUGS (1)
  1. CABOMETYX [Suspect]
     Active Substance: CABOZANTINIB S-MALATE
     Indication: Product used for unknown indication
     Dosage: 120 MG, QD (2 TABS OF 60MG)
     Route: 048
     Dates: start: 202112

REACTIONS (3)
  - Diarrhoea [Recovered/Resolved]
  - COVID-19 [Unknown]
  - Overdose [Unknown]

NARRATIVE: CASE EVENT DATE: 20211201
